FAERS Safety Report 7964308-5 (Version None)
Quarter: 2011Q4

REPORT INFORMATION
  Report Type: 
  Country: None (occurrence: None)
  Receive Date: 20111206
  Receipt Date: 20111123
  Transmission Date: 20120403
  Serious: Yes (Life-Threatening, Hospitalization, Other)
  Sender: FDA-Public Use
  Company Number: 2011MA016822

PATIENT
  Age: 28 Year
  Sex: Male

DRUGS (5)
  1. ALCOHOL (ETHANOL) [Suspect]
  2. DIAZEPAM [Suspect]
  3. BENZODIAZEPINE (NO PREF. NAME) [Suspect]
  4. HEROIN (DIAMORPHINE) [Suspect]
  5. COCAINE (COCAINE) [Suspect]

REACTIONS (13)
  - ASPIRATION [None]
  - RESTLESSNESS [None]
  - ACUTE RESPIRATORY DISTRESS SYNDROME [None]
  - HYPOXIA [None]
  - LUNG INFILTRATION [None]
  - COMA [None]
  - AGITATION [None]
  - TACHYPNOEA [None]
  - HYPERTENSION [None]
  - SHOCK [None]
  - DELIRIUM [None]
  - TACHYCARDIA [None]
  - LACTIC ACIDOSIS [None]
